FAERS Safety Report 20117665 (Version 1)
Quarter: 2021Q4

REPORT INFORMATION
  Report Type: Spontaneous
  Country: US (occurrence: US)
  Receive Date: 20211126
  Receipt Date: 20211126
  Transmission Date: 20220303
  Serious: No
  Sender: FDA-Public Use
  Company Number: US-PURDUE PHARMA-USA-2020-0179440

PATIENT
  Age: 74 Year
  Sex: Female

DRUGS (4)
  1. MORPHINE SULFATE [Suspect]
     Active Substance: MORPHINE SULFATE
     Indication: Product used for unknown indication
     Route: 048
  2. OXYCODONE HYDROCHLORIDE [Suspect]
     Active Substance: OXYCODONE HYDROCHLORIDE
     Indication: Product used for unknown indication
     Route: 048
  3. FENTANYL [Suspect]
     Active Substance: FENTANYL
     Indication: Product used for unknown indication
     Dosage: 25 MCG/HR, Q48H
     Route: 062
     Dates: start: 20201027
  4. FENTANYL [Suspect]
     Active Substance: FENTANYL
     Dosage: 25 MCG/HR, Q72H
     Route: 062

REACTIONS (9)
  - Body temperature decreased [Unknown]
  - Hot flush [Unknown]
  - Micturition urgency [Unknown]
  - Mobility decreased [Unknown]
  - Gait disturbance [Unknown]
  - Pain [Unknown]
  - Feeling abnormal [Unknown]
  - Dizziness [Unknown]
  - Constipation [Unknown]
